FAERS Safety Report 6346253-4 (Version None)
Quarter: 2009Q3

REPORT INFORMATION
  Report Type: 
  Country: None (occurrence: None)
  Receive Date: 20090909
  Receipt Date: 20090907
  Transmission Date: 20100115
  Serious: Yes (Life-Threatening, Hospitalization, Other)
  Sender: FDA-Public Use
  Company Number: PHHO2009IT01248

PATIENT
  Sex: Female
  Weight: 58 kg

DRUGS (6)
  1. RAD 666 RAD+TAB+CMAS [Suspect]
     Indication: BREAST CANCER
     Dosage: 5 MG, QD
     Route: 048
     Dates: start: 20081217, end: 20090120
  2. RAD 666 RAD+TAB+CMAS [Suspect]
     Dosage: 2.5 MG, QD
     Route: 048
     Dates: start: 20090209
  3. VINORELBINE [Suspect]
     Indication: BREAST CANCER
     Dosage: 15 MG/MG
     Route: 042
     Dates: start: 20090114, end: 20090120
  4. VINORELBINE [Suspect]
     Dosage: UNK
     Route: 048
     Dates: start: 20090209
  5. TRASTUZUMAB [Concomitant]
     Indication: BREAST CANCER
     Dosage: 2 MG/KG
     Route: 042
     Dates: start: 20090114, end: 20090120
  6. TRASTUZUMAB [Concomitant]
     Dosage: UNK
     Route: 042
     Dates: start: 20090209

REACTIONS (5)
  - DYSPNOEA [None]
  - HYPOKALAEMIA [None]
  - NEUTROPENIA [None]
  - PNEUMONITIS [None]
  - PYREXIA [None]
